FAERS Safety Report 9090934 (Version 1)
Quarter: 2013Q1

REPORT INFORMATION
  Report Type: Report from Study
  Country: US (occurrence: US)
  Receive Date: 20130201
  Receipt Date: 20130201
  Transmission Date: 20140127
  Serious: No
  Sender: FDA-Public Use
  Company Number: US-ABBOTT-12P-163-1019150-00

PATIENT
  Age: 45 Year
  Sex: Female

DRUGS (8)
  1. HUMIRA [Suspect]
     Indication: CROHN^S DISEASE
     Route: 058
     Dates: start: 20120924
  2. TRAMADOL [Suspect]
     Indication: PRODUCT USED FOR UNKNOWN INDICATION
  3. SULFASALAZINE [Concomitant]
     Indication: CROHN^S DISEASE
     Dosage: EVERY SIX HOURS
     Route: 048
  4. IBUPROFEN [Concomitant]
     Indication: CROHN^S DISEASE
     Route: 048
  5. IBUPROFEN [Concomitant]
     Indication: INFLAMMATION
  6. NEXIUM [Concomitant]
     Indication: DYSPEPSIA
     Dosage: 40 MG DAILY
     Route: 048
  7. ZYRTEC [Concomitant]
     Indication: SINUS DISORDER
     Dosage: 10 MG DAILY
     Route: 048
  8. ZYRTEC [Concomitant]
     Indication: HYPERSENSITIVITY

REACTIONS (3)
  - Amnesia [Recovering/Resolving]
  - Injection site pain [Not Recovered/Not Resolved]
  - Injection site bruising [Not Recovered/Not Resolved]
